FAERS Safety Report 14565159 (Version 1)
Quarter: 2018Q1

REPORT INFORMATION
  Report Type: Report from Study
  Country: IT (occurrence: IT)
  Receive Date: 20180223
  Receipt Date: 20180223
  Transmission Date: 20180509
  Serious: Yes (Other)
  Sender: FDA-Public Use
  Company Number: IT-ROCHE-2078252

PATIENT
  Age: 67 Year
  Sex: Male

DRUGS (9)
  1. CYTARABIN [Suspect]
     Active Substance: CYTARABINE
     Indication: CHEMOTHERAPY
     Dosage: DATE OF MOST RECENT DOSE: 22/MAR/2016
     Route: 042
     Dates: start: 20160126
  2. CISPLATIN. [Suspect]
     Active Substance: CISPLATIN
     Indication: CHEMOTHERAPY
     Dosage: DATE OF MOST RECENT DOSE:25/MAR/2016
     Route: 042
     Dates: start: 20160126
  3. ATARAX [Concomitant]
     Active Substance: HYDROXYZINE HYDROCHLORIDE
     Indication: ANXIETY
     Route: 048
     Dates: start: 20160115
  4. MEPRAL [Concomitant]
     Active Substance: OMEPRAZOLE SODIUM
     Indication: GASTRITIS PROPHYLAXIS
     Route: 048
     Dates: start: 20160115
  5. RITUXIMAB. [Suspect]
     Active Substance: RITUXIMAB
     Indication: CHEMOTHERAPY
     Dosage: DATE OF MOST RECENT DOSE:21/MAR/2016
     Route: 042
     Dates: start: 20160126
  6. BACTRIM [Concomitant]
     Active Substance: SULFAMETHOXAZOLE\TRIMETHOPRIM
     Indication: ANTIBIOTIC PROPHYLAXIS
     Route: 048
     Dates: start: 20160115
  7. PORTOLAC [Concomitant]
     Active Substance: LACTITOL
     Indication: LAXATIVE SUPPORTIVE CARE
     Route: 048
     Dates: start: 20160115
  8. DEXAMETHASONE. [Suspect]
     Active Substance: DEXAMETHASONE
     Indication: CHEMOTHERAPY
     Dosage: DATE OF MOST RECENT DOSE: 25/MAR/2016
     Route: 042
     Dates: start: 20160126
  9. LONQUEX [Suspect]
     Active Substance: LIPEGFILGRASTIM
     Indication: PROPHYLAXIS
     Dosage: DATE OF MOST RECENT DOSE:25/MAR/2016
     Route: 058
     Dates: start: 20160130

REACTIONS (1)
  - Thrombocytopenia [Recovered/Resolved]

NARRATIVE: CASE EVENT DATE: 20160204
